FAERS Safety Report 5037333-4 (Version None)
Quarter: 2006Q2

REPORT INFORMATION
  Report Type: 
  Country: None (occurrence: None)
  Receive Date: 20060613
  Receipt Date: 20060309
  Transmission Date: 20061013
  Serious: Yes (Hospitalization, Other)
  Sender: FDA-Public Use
  Company Number: US-JNJFOC-20060302971

PATIENT
  Sex: Female

DRUGS (2)
  1. ORTHO EVRA [Suspect]
  2. NUVARING (ALL OTHER NON-THERAPEUTIC PRODUCTS) [Concomitant]

REACTIONS (1)
  - DEEP VEIN THROMBOSIS [None]
